FAERS Safety Report 15243676 (Version 5)
Quarter: 2019Q2

REPORT INFORMATION
  Report Type: Spontaneous
  Country: DE (occurrence: FR)
  Receive Date: 20180806
  Receipt Date: 20190409
  Transmission Date: 20190711
  Serious: Yes (Death, Hospitalization, Other)
  Sender: FDA-Public Use
  Company Number: DE-MYLANLABS-2018M1058209

PATIENT
  Age: 66 Year
  Sex: Female
  Weight: 86 kg

DRUGS (2)
  1. VORAXAZE [Concomitant]
     Active Substance: GLUCARPIDASE
     Dosage: UNK
     Route: 042
     Dates: start: 20180625, end: 20180625
  2. METHOTREXATE MYLAN 100 MG/ML, SOLUTION FOR INJECTION [Suspect]
     Active Substance: METHOTREXATE
     Indication: NON-HODGKIN^S LYMPHOMA
     Dosage: 2900 MG, UNK
     Route: 042
     Dates: start: 20180623, end: 20180623

REACTIONS (4)
  - Mucosal inflammation [Fatal]
  - Epidermal necrosis [Fatal]
  - Acute kidney injury [Fatal]
  - Toxic skin eruption [Fatal]

NARRATIVE: CASE EVENT DATE: 20180625
